FAERS Safety Report 9096442 (Version 1)
Quarter: 2013Q1

REPORT INFORMATION
  Report Type: Spontaneous
  Country: LB (occurrence: None)
  Receive Date: 20130124
  Receipt Date: 20130124
  Transmission Date: 20140127
  Serious: Yes (Other)
  Sender: FDA-Public Use
  Company Number: 7186921

PATIENT
  Age: 12 Year
  Sex: Female
  Weight: 48 kg

DRUGS (7)
  1. LEVOTHYROXINE [Suspect]
     Indication: HYPOTHYROIDISM
  2. RECOMBINANT HUMAN GROWTH HORMONE [Suspect]
     Indication: TURNER^S SYNDROME
  3. OXYBUTYNIN (OXYBUTYNIN) [Concomitant]
  4. LAMOTRIGINE (LAMOTRIGINE) [Concomitant]
  5. VALPROIC ACID (VALPROIC ACID) [Concomitant]
  6. CALCIUM (CALCIUM) [Concomitant]
  7. VITAMIN D (ERGOCALCIFEROL) [Concomitant]

REACTIONS (1)
  - Epiphysiolysis [None]
